FAERS Safety Report 7677986 (Version 3)
Quarter: 2014Q3

REPORT INFORMATION
  Report Type: Report from Study
  Country: DE (occurrence: DE)
  Receive Date: 20101122
  Receipt Date: 20140912
  Transmission Date: 20150326
  Serious: Yes (Hospitalization)
  Sender: FDA-Public Use
  Company Number: PHHO2009DE10993

PATIENT

DRUGS (3)
  1. MYFORTIC [Suspect]
     Active Substance: MYCOPHENOLATE SODIUM
     Indication: RENAL TRANSPLANT
     Dosage: 1440 MG, DAILY
     Route: 048
     Dates: start: 20081123
  2. NO TREATMENT RECEIVED [Suspect]
     Active Substance: UNSPECIFIED INGREDIENT
     Indication: RENAL TRANSPLANT
     Dosage: UNK, NO TREATMENT
  3. SANDIMMUN OPTORAL [Suspect]
     Active Substance: CYCLOSPORINE
     Indication: RENAL TRANSPLANT
     Dosage: 250 MG, DAILY
     Route: 048
     Dates: start: 20081123

REACTIONS (10)
  - Urosepsis [Recovered/Resolved]
  - Enterococcal infection [Recovered/Resolved]
  - Impaired healing [Recovered/Resolved]
  - Wound necrosis [Recovered/Resolved]
  - Pyrexia [Recovered/Resolved]
  - Hypotonia [Recovered/Resolved]
  - Escherichia sepsis [Recovered/Resolved]
  - Klebsiella sepsis [Recovered/Resolved]
  - Pain in extremity [Recovered/Resolved]
  - Lymphocele [Recovered/Resolved]

NARRATIVE: CASE EVENT DATE: 20090212
